FAERS Safety Report 17291440 (Version 1)
Quarter: 2020Q1

REPORT INFORMATION
  Report Type: Spontaneous
  Country: US (occurrence: US)
  Receive Date: 20200117
  Receipt Date: 20200117
  Transmission Date: 20200409
  Serious: Yes (Hospitalization)
  Sender: FDA-Public Use
  Company Number: None

PATIENT
  Age: 48 Year
  Sex: Female

DRUGS (11)
  1. DILTIAZEM. [Concomitant]
     Active Substance: DILTIAZEM
  2. LEUCOVOR CA [Concomitant]
  3. HUMIRA [Suspect]
     Active Substance: ADALIMUMAB
     Indication: MAJOR DEPRESSION
     Dosage: ?          OTHER FREQUENCY:ONCE EVERY 14 DAYS;?
     Route: 058
     Dates: start: 20191107
  4. DULOXETINE. [Concomitant]
     Active Substance: DULOXETINE
  5. TIROSINT [Concomitant]
     Active Substance: LEVOTHYROXINE SODIUM
  6. AZATHIOPRINE. [Concomitant]
     Active Substance: AZATHIOPRINE
  7. XTAMPZA [Concomitant]
     Active Substance: OXYCODONE
  8. HYDROXYYZ HCL [Concomitant]
  9. DEXMETHYLPHE [Concomitant]
  10. METHOTREXATE. [Concomitant]
     Active Substance: METHOTREXATE
  11. PREDNISONE. [Concomitant]
     Active Substance: PREDNISONE

REACTIONS (2)
  - Therapy cessation [None]
  - Surgery [None]

NARRATIVE: CASE EVENT DATE: 20200102
